FAERS Safety Report 7910497-8 (Version None)
Quarter: 2011Q4

REPORT INFORMATION
  Report Type: 
  Country: None (occurrence: None)
  Receive Date: 20111111
  Receipt Date: 20111104
  Transmission Date: 20120403
  Serious: Yes (Other)
  Sender: FDA-Public Use
  Company Number: PHEH2011US07476

PATIENT
  Sex: Male
  Weight: 143 kg

DRUGS (18)
  1. FAMPRIDINE [Concomitant]
     Indication: GAIT DISTURBANCE
     Dosage: 10 MG, BID
     Route: 048
     Dates: start: 20110216
  2. METAMUCIL-2 [Concomitant]
     Dosage: 28.3 %, UNK
  3. GUAIFENESIN [Concomitant]
     Indication: COUGH
     Dosage: UNK UKN, UNK
  4. BENADRYL [Concomitant]
     Dosage: 25 MG, QHS
     Route: 048
     Dates: start: 20101129
  5. ZITHROMAX [Concomitant]
     Indication: NAUSEA
     Dosage: UNK UKN, UNK
  6. GILENYA [Suspect]
     Indication: MULTIPLE SCLEROSIS
     Dosage: 0.5 MG, DAILY
     Route: 048
     Dates: start: 20110802, end: 20111019
  7. BENZOYL PEROXIDE [Concomitant]
     Indication: DERMATITIS CONTACT
     Dosage: 5 %, BID
     Dates: start: 20110722
  8. FLUTICASONE PROPIONATE [Concomitant]
     Dosage: 50 MCG/ACT TWO SPRAYS EACH NOSTRIL
     Dates: start: 20111004
  9. GUAIFENESIN [Concomitant]
     Indication: NASOPHARYNGITIS
  10. FLUOCINONIDE [Concomitant]
     Dosage: UNK
     Dates: start: 20111027
  11. COPAXONE [Concomitant]
     Dosage: UNK UKN, UNK
  12. MIRTAZAPINE [Concomitant]
     Dosage: 7.5 MG, QHS
     Route: 048
     Dates: start: 20111009
  13. HYDROCHLOROTHIAZIDE [Concomitant]
     Dosage: 25 MG,  ONE TABLET
     Route: 048
     Dates: start: 20110324
  14. ACETAMINOPHEN [Concomitant]
     Dosage: 500 MG, TAKING ONE TABLET EVERY 4 TO 6 HOURS
     Route: 048
     Dates: start: 20101129
  15. VIAGRA [Concomitant]
     Indication: SEXUAL DYSFUNCTION
     Dosage: 50 MG, HALF TO ONE TABLET ONE HOUR PRIOR TO INTERCOURSE
     Route: 048
     Dates: start: 20101129
  16. VITAMIN D [Concomitant]
     Dosage: 400 MG, BID
     Dates: start: 20101129
  17. CLINDAMYCIN PHOSPHATE [Concomitant]
     Indication: ROSACEA
     Dosage: 1 %, BID
     Dates: start: 20110722
  18. MULTIPLE VITAMINS [Concomitant]
     Dosage: ONE TABLET DAILY
     Route: 048
     Dates: start: 20110324

REACTIONS (29)
  - VISION BLURRED [None]
  - SEBORRHOEIC KERATOSIS [None]
  - TINNITUS [None]
  - TREMOR [None]
  - DERMATITIS [None]
  - DIVERTICULITIS [None]
  - CEREBELLAR SYNDROME [None]
  - MUSCLE SPASTICITY [None]
  - MACULAR SCAR [None]
  - BENIGN NEOPLASM OF SKIN [None]
  - DIVERTICULUM [None]
  - HYPERTENSION [None]
  - HYPERAESTHESIA [None]
  - VISUAL ACUITY REDUCED [None]
  - BLINDNESS TRANSIENT [None]
  - CATARACT [None]
  - ACTINIC ELASTOSIS [None]
  - MACULAR OEDEMA [None]
  - CATARACT NUCLEAR [None]
  - DERMAL CYST [None]
  - DEAFNESS NEUROSENSORY [None]
  - CONSTIPATION [None]
  - HAEMORRHOIDS [None]
  - SEBORRHOEA [None]
  - COUGH [None]
  - ROSACEA [None]
  - VISUAL IMPAIRMENT [None]
  - VITREOUS FLOATERS [None]
  - BLEPHAROSPASM [None]
